FAERS Safety Report 8859184 (Version 2)
Quarter: 2012Q4

REPORT INFORMATION
  Report Type: Spontaneous
  Country: PL (occurrence: None)
  Receive Date: 20121023
  Receipt Date: 20121114
  Transmission Date: 20130627
  Serious: No
  Sender: FDA-Public Use
  Company Number: 1210POL007579

PATIENT
  Age: 30 Month
  Sex: Male
  Weight: 11 kg

DRUGS (2)
  1. CEDAX [Suspect]
     Indication: PROPHYLAXIS URINARY TRACT INFECTION
     Dosage: 0.7 ml, qd strength: 36 mg/ml, oral
     Dates: start: 2011
  2. CEDAX [Suspect]
     Indication: PROPHYLAXIS URINARY TRACT INFECTION

REACTIONS (2)
  - Off label use [None]
  - No adverse event [None]
